FAERS Safety Report 6154869-3 (Version None)
Quarter: 2009Q2

REPORT INFORMATION
  Report Type: 
  Country: None (occurrence: None)
  Receive Date: 20090414
  Receipt Date: 20090403
  Transmission Date: 20091009
  Serious: Yes (Other)
  Sender: FDA-Public Use
  Company Number: FR-PFIZER INC-2009193506

PATIENT

DRUGS (2)
  1. INSPRA [Suspect]
     Dosage: 0.5 DF, 1X/DAY
     Dates: start: 20090101, end: 20090101
  2. BURINEX [Suspect]
     Dosage: 1 DF, ALTERNATE DAY
     Dates: start: 20090101, end: 20090101

REACTIONS (4)
  - ABNORMAL LOSS OF WEIGHT [None]
  - ASTHENIA [None]
  - BLOOD CREATININE INCREASED [None]
  - DECREASED APPETITE [None]
